FAERS Safety Report 14698129 (Version 1)
Quarter: 2018Q1

REPORT INFORMATION
  Report Type: Report from Study
  Country: AT (occurrence: AT)
  Receive Date: 20180330
  Receipt Date: 20180330
  Transmission Date: 20180509
  Serious: Yes (Death)
  Sender: FDA-Public Use
  Company Number: AT-TEVA-2018-AT-874496

PATIENT
  Sex: Male

DRUGS (1)
  1. CISPLATIN. [Suspect]
     Active Substance: CISPLATIN
     Indication: TESTICULAR GERM CELL TUMOUR
     Route: 065

REACTIONS (1)
  - Febrile neutropenia [Fatal]
